FAERS Safety Report 7799082-9 (Version None)
Quarter: 2011Q4

REPORT INFORMATION
  Report Type: 
  Country: None (occurrence: None)
  Receive Date: 20111006
  Receipt Date: 20110929
  Transmission Date: 20120403
  Serious: Yes (Hospitalization)
  Sender: FDA-Public Use
  Company Number: SE-PFIZER INC-2011233323

PATIENT
  Age: 72 Year
  Sex: Male

DRUGS (16)
  1. POTASSIUM CHLORIDE [Concomitant]
     Dosage: UNK
  2. FUROSEMIDE [Concomitant]
     Dosage: UNK
  3. ZYVOX [Suspect]
     Indication: STERNITIS
     Dosage: 1.2 G, 1X/DAY
     Route: 048
     Dates: start: 20110301, end: 20110321
  4. ZYVOX [Suspect]
     Indication: MEDIASTINITIS
  5. SIMVASTATIN [Concomitant]
     Dosage: UNK
  6. BEHEPAN [Concomitant]
     Dosage: UNK
  7. OXYCONTIN [Concomitant]
     Dosage: UNK
  8. NOVOMIX [Concomitant]
     Dosage: UNK
  9. OXYCODONE HCL [Concomitant]
     Dosage: UNK
  10. ATACAND [Concomitant]
     Dosage: UNK
  11. CITALOPRAM [Concomitant]
     Dosage: UNK
  12. MYCOSTATIN [Concomitant]
     Dosage: 100000 IU/ML, UNK
  13. BISOPROLOL FUMARATE [Concomitant]
     Dosage: UNK
  14. SPIRONOLACTONE [Concomitant]
     Dosage: UNK
  15. ACETAMINOPHEN [Concomitant]
     Dosage: UNK
  16. ASPIRIN [Concomitant]
     Dosage: UNK

REACTIONS (3)
  - ANAEMIA [None]
  - DIARRHOEA [None]
  - THROMBOCYTOPENIA [None]
